FAERS Safety Report 17142283 (Version 1)
Quarter: 2019Q4

REPORT INFORMATION
  Report Type: Spontaneous
  Country: US (occurrence: US)
  Receive Date: 20191211
  Receipt Date: 20191211
  Transmission Date: 20200122
  Serious: No
  Sender: FDA-Public Use
  Company Number: US-JUBILANT CADISTA PHARMACEUTICALS-2018JUB00512

PATIENT
  Age: 66 Year
  Sex: Male
  Weight: 83.9 kg

DRUGS (16)
  1. MICARDIS [Concomitant]
     Active Substance: TELMISARTAN
     Dosage: UNK
  2. LEVOCETIRIZINE DIHYDROCHLORIDE. [Concomitant]
     Active Substance: LEVOCETIRIZINE DIHYDROCHLORIDE
  3. RESTASIS [Concomitant]
     Active Substance: CYCLOSPORINE
  4. METHYLPREDNISOLONE. [Suspect]
     Active Substance: METHYLPREDNISOLONE
     Indication: LIGAMENT RUPTURE
  5. ^SOLUTAB^ [Concomitant]
  6. IRON SUPPLEMENT [Concomitant]
     Active Substance: IRON
     Dosage: 65 MG, 2X/DAY
  7. CARDIZEM CD [Concomitant]
     Active Substance: DILTIAZEM HYDROCHLORIDE
  8. CENTRUM SILVER [Concomitant]
     Active Substance: MINERALS\VITAMINS
  9. TIMOLOL MALEATE. [Concomitant]
     Active Substance: TIMOLOL MALEATE
  10. METRONIDAZOLE. [Concomitant]
     Active Substance: METRONIDAZOLE
  11. VITAMIN D3 [Concomitant]
     Active Substance: CHOLECALCIFEROL
  12. ATORVASTATIN [Concomitant]
     Active Substance: ATORVASTATIN
  13. METHYLPREDNISOLONE. [Suspect]
     Active Substance: METHYLPREDNISOLONE
     Indication: PAIN IN EXTREMITY
     Dosage: 24 MG (SIX TABLETS) THE FIRST DAY THEN TAPERED DOWN
     Route: 048
     Dates: start: 201811, end: 201811
  14. CARDURA XL [Concomitant]
     Active Substance: DOXAZOSIN MESYLATE
  15. LUMIGAN [Concomitant]
     Active Substance: BIMATOPROST
  16. SILVADENE [Concomitant]
     Active Substance: SILVER SULFADIAZINE

REACTIONS (3)
  - Dermatitis herpetiformis [Not Recovered/Not Resolved]
  - Off label use [Recovered/Resolved]
  - Acne [Not Recovered/Not Resolved]

NARRATIVE: CASE EVENT DATE: 201811
